FAERS Safety Report 4348485-3 (Version None)
Quarter: 2004Q2

REPORT INFORMATION
  Report Type: 
  Country: None (occurrence: None)
  Receive Date: 20040427
  Receipt Date: 20040311
  Transmission Date: 20050107
  Serious: No
  Sender: FDA-Public Use
  Company Number: US-GLAXOSMITHKLINE-A0502353A

PATIENT
  Age: 58 Year
  Sex: Female

DRUGS (5)
  1. VENTOLIN [Suspect]
     Indication: ILL-DEFINED DISORDER
     Dosage: 2PUFF FOUR TIMES PER DAY
     Route: 055
     Dates: start: 20040101
  2. ALBUTEROL [Concomitant]
  3. UNIPHYL [Concomitant]
  4. FLOVENT [Concomitant]
  5. COMBIVENT [Concomitant]

REACTIONS (1)
  - DRUG INEFFECTIVE [None]
